FAERS Safety Report 6783664-7 (Version None)
Quarter: 2010Q2

REPORT INFORMATION
  Report Type: 
  Country: None (occurrence: None)
  Receive Date: 20100622
  Receipt Date: 20100609
  Transmission Date: 20101027
  Serious: Yes (Other)
  Sender: FDA-Public Use
  Company Number: AU-ROCHE-707151

PATIENT
  Sex: Female
  Weight: 76 kg

DRUGS (1)
  1. TOCILIZUMAB [Suspect]
     Indication: RHEUMATOID ARTHRITIS
     Dosage: DATE OF LAST DOSE PRIOR TO SAE: 24 MAY 2010.
     Route: 042
     Dates: start: 20081113, end: 20100531

REACTIONS (1)
  - BREAST NEOPLASM [None]
